FAERS Safety Report 6155914-1 (Version None)
Quarter: 2009Q2

REPORT INFORMATION
  Report Type: 
  Country: None (occurrence: None)
  Receive Date: 20090413
  Receipt Date: 20081126
  Transmission Date: 20091009
  Serious: Yes (Hospitalization, Other)
  Sender: FDA-Public Use
  Company Number: PERC20080121

PATIENT
  Age: 45 Year
  Sex: Male

DRUGS (4)
  1. PERCOCET [Suspect]
  2. REYATAZ [Suspect]
     Indication: HIV INFECTION
     Dosage: 300 MG
  3. NORVIR [Suspect]
     Indication: HIV INFECTION
     Dosage: 100 MG, DAILY
  4. TRUVADA [Suspect]
     Indication: HIV INFECTION

REACTIONS (3)
  - DEPRESSION [None]
  - LOSS OF EMPLOYMENT [None]
  - SUICIDE ATTEMPT [None]
